FAERS Safety Report 15731083 (Version 1)
Quarter: 2018Q4

REPORT INFORMATION
  Report Type: Report from Study
  Country: US (occurrence: US)
  Receive Date: 20181217
  Receipt Date: 20181217
  Transmission Date: 20190205
  Serious: Yes (Other)
  Sender: FDA-Public Use
  Company Number: US-ASTRAZENECA-2018SF39133

PATIENT
  Age: 22693 Day
  Sex: Male
  Weight: 113.4 kg

DRUGS (1)
  1. TAGRISSO [Suspect]
     Active Substance: OSIMERTINIB
     Indication: LUNG NEOPLASM MALIGNANT
     Route: 048
     Dates: start: 20181006

REACTIONS (19)
  - Fluid retention [Unknown]
  - Insomnia [Recovered/Resolved]
  - Cardiomegaly [Unknown]
  - Cardiac disorder [Unknown]
  - Asthenia [Unknown]
  - Peripheral swelling [Unknown]
  - Cardiac failure congestive [Unknown]
  - Oxygen saturation decreased [Recovering/Resolving]
  - Polyuria [Unknown]
  - Swelling [Recovering/Resolving]
  - Loss of personal independence in daily activities [Unknown]
  - Heart rate increased [Unknown]
  - Urine output decreased [Unknown]
  - Pollakiuria [Unknown]
  - Dyspnoea exertional [Unknown]
  - Platelet count decreased [Unknown]
  - Acute left ventricular failure [Unknown]
  - Blood sodium decreased [Unknown]
  - Back pain [Unknown]

NARRATIVE: CASE EVENT DATE: 20181029
